FAERS Safety Report 9880709 (Version 1)
Quarter: 2014Q1

REPORT INFORMATION
  Report Type: Spontaneous
  Country: NL (occurrence: None)
  Receive Date: 20140205
  Receipt Date: 20140205
  Transmission Date: 20141002
  Serious: Yes (Hospitalization)
  Sender: FDA-Public Use
  Company Number: IMP_07452_2014

PATIENT
  Age: 71 Year
  Sex: Female

DRUGS (7)
  1. VALPROIC ACID (VALPROIC ACID) [Suspect]
     Indication: EPILEPSY
  2. PHENOBARBITAL [Concomitant]
  3. CARBASALATE CALCIUM [Concomitant]
  4. ESOMEPRAZOLE [Concomitant]
  5. ATORVASTATIN [Concomitant]
  6. VITAMIN B COMPLEX [Concomitant]
  7. IBUPROFEN [Concomitant]

REACTIONS (3)
  - Inappropriate antidiuretic hormone secretion [None]
  - Escherichia urinary tract infection [None]
  - Hyponatraemia [None]
